FAERS Safety Report 23324621 (Version 1)
Quarter: 2023Q4

REPORT INFORMATION
  Report Type: Report from Study
  Country: ES (occurrence: ES)
  Receive Date: 20231221
  Receipt Date: 20231221
  Transmission Date: 20240109
  Serious: Yes (Hospitalization)
  Sender: FDA-Public Use
  Company Number: ES-Merck Healthcare KGaA-2023494323

PATIENT
  Age: 14 Year
  Sex: Male

DRUGS (1)
  1. SAIZEN [Suspect]
     Active Substance: SOMATROPIN
     Indication: Growth hormone deficiency
     Route: 058
     Dates: start: 20230127

REACTIONS (3)
  - Mental disorder [Unknown]
  - Device use error [Recovering/Resolving]
  - Device breakage [Recovering/Resolving]

NARRATIVE: CASE EVENT DATE: 20231201
